FAERS Safety Report 15516729 (Version 1)
Quarter: 2018Q4

REPORT INFORMATION
  Report Type: Spontaneous
  Country: FI (occurrence: FI)
  Receive Date: 20181017
  Receipt Date: 20181017
  Transmission Date: 20190205
  Serious: Yes (Hospitalization, Other)
  Sender: FDA-Public Use
  Company Number: FI-MYLANLABS-2018M1075628

PATIENT
  Age: 34 Year
  Sex: Male

DRUGS (3)
  1. MYCOPHENOLIC ACID. [Concomitant]
     Active Substance: MYCOPHENOLIC ACID
     Indication: INTESTINAL TRANSPLANT
     Dosage: 720 MG, QD
     Route: 065
  2. TACROLIMUS. [Suspect]
     Active Substance: TACROLIMUS
     Indication: INTESTINAL TRANSPLANT
     Dosage: UNK UNK, UNKNOWN FREQ.
     Route: 065
  3. METHYLPREDNISOLONE. [Concomitant]
     Active Substance: METHYLPREDNISOLONE
     Indication: INTESTINAL TRANSPLANT
     Dosage: 6 MG, QD
     Route: 065

REACTIONS (7)
  - Product use in unapproved indication [Unknown]
  - Intestine transplant rejection [Recovered/Resolved]
  - Cytomegalovirus gastroenteritis [Recovered/Resolved]
  - Gastroenteritis norovirus [Not Recovered/Not Resolved]
  - Transplant rejection [Recovered/Resolved]
  - Off label use [Unknown]
  - Volvulus [Unknown]
